FAERS Safety Report 25531116 (Version 1)
Quarter: 2025Q3

REPORT INFORMATION
  Report Type: Spontaneous
  Country: US (occurrence: None)
  Receive Date: 20250708
  Receipt Date: 20250708
  Transmission Date: 20251021
  Serious: Yes (Hospitalization)
  Sender: FDA-CTU
  Company Number: None

PATIENT
  Age: 67 Year
  Sex: Male
  Weight: 80.9 kg

DRUGS (2)
  1. XELODA [Suspect]
     Active Substance: CAPECITABINE
     Indication: Anal squamous cell carcinoma
     Route: 048
     Dates: start: 20250618
  2. MITOMYCIN C [Suspect]
     Active Substance: MITOMYCIN
     Indication: Anal squamous cell carcinoma
     Route: 042
     Dates: start: 20250618, end: 20250618

REACTIONS (7)
  - Oesophageal obstruction [None]
  - Oesophageal stenosis [None]
  - Oesophagitis [None]
  - Vomiting [None]
  - Haemoptysis [None]
  - Aspiration [None]
  - Post procedural haemorrhage [None]

NARRATIVE: CASE EVENT DATE: 20250704
